FAERS Safety Report 17790994 (Version 2)
Quarter: 2020Q2

REPORT INFORMATION
  Report Type: Spontaneous
  Country: US (occurrence: US)
  Receive Date: 20200515
  Receipt Date: 20200603
  Transmission Date: 20200714
  Serious: No
  Sender: FDA-Public Use
  Company Number: US-INCYTE CORPORATION-2020IN004224

PATIENT

DRUGS (2)
  1. JAKAFI [Suspect]
     Active Substance: RUXOLITINIB
     Dosage: 20 MILLIGRAM, QD (IN THE EVENING)
     Route: 048
     Dates: start: 20191227
  2. JAKAFI [Suspect]
     Active Substance: RUXOLITINIB
     Indication: POLYCYTHAEMIA VERA
     Dosage: 20 MILLIGRAM, QD
     Route: 048
     Dates: start: 20191227

REACTIONS (4)
  - Product use issue [Unknown]
  - Depression [Unknown]
  - Cystitis [Unknown]
  - Urine analysis abnormal [Unknown]
